FAERS Safety Report 18975691 (Version 1)
Quarter: 2021Q1

REPORT INFORMATION
  Report Type: Spontaneous
  Country: JP (occurrence: JP)
  Receive Date: 20210305
  Receipt Date: 20210305
  Transmission Date: 20210420
  Serious: Yes (Death, Other)
  Sender: FDA-Public Use
  Company Number: JP-009507513-2103JPN000117J

PATIENT
  Age: 5 Decade
  Sex: Male

DRUGS (3)
  1. KEYTRUDA [Suspect]
     Active Substance: PEMBROLIZUMAB
     Indication: RENAL CELL CARCINOMA
     Dosage: 200 MILLIGRAM, Q3W
     Route: 041
     Dates: start: 20200318, end: 20210217
  2. AXITINIB [Suspect]
     Active Substance: AXITINIB
     Dosage: 10 MILLIGRAM, BID
     Route: 048
     Dates: start: 20200520, end: 20210217
  3. AXITINIB [Suspect]
     Active Substance: AXITINIB
     Dosage: 5 MILLIGRAM, BID
     Route: 048
     Dates: start: 20200318, end: 20200520

REACTIONS (1)
  - Sudden death [Fatal]

NARRATIVE: CASE EVENT DATE: 20210222
